FAERS Safety Report 8530398-4 (Version None)
Quarter: 2012Q3

REPORT INFORMATION
  Report Type: 
  Country: None (occurrence: None)
  Receive Date: 20120723
  Receipt Date: 20120720
  Transmission Date: 20120928
  Serious: Yes (Other)
  Sender: FDA-Public Use
  Company Number: JP-PFIZER INC-2012158548

PATIENT
  Age: 82 Year
  Sex: Female

DRUGS (1)
  1. ALDACTONE [Suspect]
     Dosage: 50 MG (2 TABS OF 25 MG AT MORNING), 1X/DAY
     Route: 048

REACTIONS (2)
  - SOMNOLENCE [None]
  - POSTMENOPAUSAL HAEMORRHAGE [None]
